FAERS Safety Report 24221308 (Version 1)
Quarter: 2024Q3

REPORT INFORMATION
  Report Type: Report from Study
  Country: US (occurrence: None)
  Receive Date: 20240819
  Receipt Date: 20240819
  Transmission Date: 20241017
  Serious: Yes (Hospitalization)
  Sender: ASTRAZENECA
  Company Number: 2022A313798

PATIENT
  Sex: Male

DRUGS (1)
  1. FASENRA [Suspect]
     Active Substance: BENRALIZUMAB
     Dosage: MG
     Route: 058

REACTIONS (5)
  - Hernia [Unknown]
  - Pain [Unknown]
  - Hypotension [Unknown]
  - Oxygen saturation decreased [Unknown]
  - Product dose omission issue [Unknown]
